FAERS Safety Report 11335564 (Version 1)
Quarter: 2015Q3

REPORT INFORMATION
  Report Type: Spontaneous
  Country: US (occurrence: None)
  Receive Date: 20150731
  Receipt Date: 20150731
  Transmission Date: 20151125
  Serious: Yes (Disabling)
  Sender: FDA-Public Use
  Company Number: None

PATIENT
  Age: 50 Year
  Sex: Female
  Weight: 103 kg

DRUGS (8)
  1. OMEPRAZOLE  (PRILOSEC) [Concomitant]
  2. HARVONI [Suspect]
     Active Substance: LEDIPASVIR\SOFOSBUVIR
     Indication: HEPATITIS C VIRUS TEST POSITIVE
     Dosage: 1 PILL
     Route: 048
     Dates: start: 20150421, end: 20150508
  3. FLUTICASONE (FLONASE) [Concomitant]
  4. ALBUTEROL (PROAIR HFA) [Concomitant]
  5. LEVONORGESTREL (MIRENA) [Concomitant]
  6. PROPRANOLOL (INDERAL) [Concomitant]
  7. CALCIUM CARBONATE/VITAMIN D3 (CALCIUM WITH VITAMIN D) [Concomitant]
  8. BECLOMETHASONE DIPROPIONATE (QVAR) [Concomitant]

REACTIONS (4)
  - Balance disorder [None]
  - Encephalopathy [None]
  - Dysarthria [None]
  - Dysgraphia [None]

NARRATIVE: CASE EVENT DATE: 20150508
